FAERS Safety Report 17200968 (Version 1)
Quarter: 2019Q4

REPORT INFORMATION
  Report Type: Spontaneous
  Country: HR (occurrence: HR)
  Receive Date: 20191226
  Receipt Date: 20191226
  Transmission Date: 20200122
  Serious: Yes (Death)
  Sender: FDA-Public Use
  Company Number: HR-ROCHE-2502056

PATIENT
  Age: 79 Year
  Sex: Male

DRUGS (1)
  1. ESBRIET [Suspect]
     Active Substance: PIRFENIDONE
     Indication: IDIOPATHIC PULMONARY FIBROSIS
     Dosage: TITRATION WITH 267 MG, THAN 10 MONTHS 3X1 A 801 MG
     Route: 065
     Dates: start: 20181220, end: 20191215

REACTIONS (1)
  - Hepatotoxicity [Fatal]
